FAERS Safety Report 14768849 (Version 1)
Quarter: 2018Q2

REPORT INFORMATION
  Report Type: Spontaneous
  Country: DE (occurrence: DE)
  Receive Date: 20180417
  Receipt Date: 20180417
  Transmission Date: 20180711
  Serious: Yes (Hospitalization)
  Sender: FDA-Public Use
  Company Number: DE-ASCEND THERAPEUTICS-2045862

PATIENT
  Age: 60 Year
  Sex: Female

DRUGS (5)
  1. VIANI (FLUTICASONE PROPIONATE, SALMETEROL XINAFOATE) [Suspect]
     Active Substance: FLUTICASONE PROPIONATE\SALMETEROL XINAFOATE
     Route: 055
  2. VITAMIN B COMPLEX [Suspect]
     Active Substance: CYANOCOBALAMIN\DEXPANTHENOL\NIACINAMIDE\PYRIDOXINE HYDROCHLORIDE\RIBOFLAVIN 5^-PHOSPHATE SODIUM\THIAMINE HYDROCHLORIDE\VITAMIN B COMPLEX
     Route: 048
  3. PANTROPRAZOL (PANTOPRAZOLE SODIUM SESQUIHYDRATE) [Suspect]
     Active Substance: PANTOPRAZOLE SODIUM
     Route: 048
  4. ESTROGEL [Suspect]
     Active Substance: ESTRADIOL
     Indication: PRODUCT USED FOR UNKNOWN INDICATION
     Route: 055
  5. SALBUTAMOL (SALBUTAMOL) [Suspect]
     Active Substance: ALBUTEROL
     Route: 055

REACTIONS (6)
  - Product use issue [None]
  - Nausea [Unknown]
  - Petechiae [Unknown]
  - Dyspnoea [Unknown]
  - Rash [Unknown]
  - Erythema [Unknown]
